FAERS Safety Report 8823371 (Version 1)
Quarter: 2012Q4

REPORT INFORMATION
  Report Type: 
  Country: DE (occurrence: FR)
  Receive Date: 20121003
  Receipt Date: 20121003
  Transmission Date: 20130627
  Serious: Yes (Hospitalization, Other)
  Sender: FDA-Public Use
  Company Number: FR-BRISTOL-MYERS SQUIBB COMPANY-17001926

PATIENT
  Age: 61 Year
  Sex: Male

DRUGS (7)
  1. GLUCOPHAGE [Suspect]
     Indication: TYPE 2 DIABETES MELLITUS
     Route: 048
     Dates: end: 20120725
  2. LANTUS [Concomitant]
  3. NOVORAPID [Concomitant]
  4. PLAVIX [Concomitant]
  5. DETENSIEL [Concomitant]
  6. OMEPRAZOLE [Concomitant]
  7. RENITEC [Concomitant]

REACTIONS (4)
  - Hyperlactacidaemia [Recovered/Resolved]
  - Hyperglycaemia [Unknown]
  - Renal failure acute [Unknown]
  - Hypovolaemic shock [Unknown]
